FAERS Safety Report 6117247-9 (Version None)
Quarter: 2009Q1

REPORT INFORMATION
  Report Type: 
  Country: None (occurrence: None)
  Receive Date: 20090314
  Receipt Date: 20090109
  Transmission Date: 20090719
  Serious: No
  Sender: FDA-Public Use
  Company Number: US-ABBOTT-09P-163-0497025-00

PATIENT
  Sex: Female

DRUGS (8)
  1. HUMIRA [Suspect]
     Indication: PSORIATIC ARTHROPATHY
     Route: 058
     Dates: start: 20080401
  2. ENTOCORT EC [Concomitant]
     Indication: DRUG USE FOR UNKNOWN INDICATION
  3. MIRAPEX [Concomitant]
     Indication: RESTLESS LEGS SYNDROME
  4. SYNTHROID [Concomitant]
     Indication: THYROID HORMONE REPLACEMENT THERAPY
  5. VITAMINS [Concomitant]
     Indication: DRUG USE FOR UNKNOWN INDICATION
  6. DETROL LA [Concomitant]
     Indication: DRUG USE FOR UNKNOWN INDICATION
  7. ENTOCORT EC [Concomitant]
     Indication: COLITIS
  8. BENICAR [Concomitant]
     Indication: DRUG USE FOR UNKNOWN INDICATION
     Dates: start: 20070101

REACTIONS (5)
  - DIZZINESS [None]
  - INJECTION SITE IRRITATION [None]
  - OEDEMA [None]
  - PAIN [None]
  - RASH [None]
